FAERS Safety Report 4648058-9 (Version None)
Quarter: 2005Q2

REPORT INFORMATION
  Report Type: 
  Country: None (occurrence: None)
  Receive Date: 20050331
  Receipt Date: 20041220
  Transmission Date: 20051028
  Serious: No
  Sender: FDA-Public Use
  Company Number: 04P-163-0283976-00

PATIENT
  Age: 79 Year
  Sex: Female
  Weight: 54.4316 kg

DRUGS (11)
  1. HUMIRA [Suspect]
     Indication: RHEUMATOID ARTHRITIS
     Dosage: 40MG, 1 IN 2 WK, SUBCUTANEOUS
     Route: 058
     Dates: start: 20030101
  2. PREDNISONE [Concomitant]
  3. METHOTREXATE SODIUM [Concomitant]
  4. ALENDRONATE SODIUM [Concomitant]
  5. HYDROXYCHLOROQUINE PHOSPHATE [Concomitant]
  6. FOLIC ACID [Concomitant]
  7. DARVOCET [Concomitant]
  8. FISH OIL [Concomitant]
  9. CALCITRIOL [Concomitant]
  10. ASCORBIC ACID [Concomitant]
  11. MULTI-VITAMINS [Concomitant]

REACTIONS (2)
  - NASAL CONGESTION [None]
  - SNEEZING [None]
